FAERS Safety Report 4812587-5 (Version None)
Quarter: 2005Q4

REPORT INFORMATION
  Report Type: 
  Country: None (occurrence: None)
  Receive Date: 20051028
  Receipt Date: 20041101
  Transmission Date: 20060501
  Serious: No
  Sender: FDA-Public Use
  Company Number: US-GLAXOSMITHKLINE-A0532068A

PATIENT
  Age: 4 Year
  Sex: Female
  Weight: 14.5 kg

DRUGS (4)
  1. ADVAIR DISKUS 100/50 [Suspect]
     Indication: ASTHMA
     Dosage: 1PUFF TWICE PER DAY
     Route: 055
     Dates: start: 20040723, end: 20041017
  2. SINGULAIR [Concomitant]
     Indication: ASTHMA
     Dosage: 4MG AT NIGHT
     Route: 048
     Dates: start: 20020101
  3. RHINOCORT [Concomitant]
     Dosage: 2SPR PER DAY
     Route: 045
     Dates: start: 20020101
  4. TRIAMINIC-12 [Concomitant]
     Dosage: 1TSP AS REQUIRED
     Route: 048

REACTIONS (2)
  - DRUG INEFFECTIVE [None]
  - PHARMACEUTICAL PRODUCT COMPLAINT [None]
